FAERS Safety Report 10511418 (Version 2)
Quarter: 2014Q4

REPORT INFORMATION
  Report Type: Spontaneous
  Country: US (occurrence: US)
  Receive Date: 20141010
  Receipt Date: 20141024
  Transmission Date: 20150528
  Serious: Yes (Other)
  Sender: FDA-Public Use
  Company Number: US-BAYER-2014-148086

PATIENT
  Sex: Female

DRUGS (1)
  1. MIRENA [Suspect]
     Active Substance: LEVONORGESTREL
     Dosage: 20 MCG/24HR, CONT
     Route: 015
     Dates: start: 20140812

REACTIONS (18)
  - Cervical dysplasia [None]
  - Back pain [Not Recovered/Not Resolved]
  - Abdominal distension [None]
  - Pelvic infection [None]
  - Blood pressure increased [None]
  - Kidney infection [None]
  - Headache [Not Recovered/Not Resolved]
  - Mood altered [Not Recovered/Not Resolved]
  - Device use error [None]
  - Urinary tract infection [None]
  - Intestinal dilatation [Not Recovered/Not Resolved]
  - Vaginitis bacterial [None]
  - Vaginal discharge [Not Recovered/Not Resolved]
  - Nausea [None]
  - Vomiting [None]
  - Pelvic inflammatory disease [None]
  - Abdominal pain [Not Recovered/Not Resolved]
  - Device damage [None]

NARRATIVE: CASE EVENT DATE: 2014
